FAERS Safety Report 6193314-9 (Version None)
Quarter: 2009Q2

REPORT INFORMATION
  Report Type: 
  Country: None (occurrence: None)
  Receive Date: 20090514
  Receipt Date: 20090420
  Transmission Date: 20091009
  Serious: Yes (Other)
  Sender: FDA-Public Use
  Company Number: 2009AP001619

PATIENT
  Age: 64 Year
  Sex: Female

DRUGS (3)
  1. LISINOPRIL [Suspect]
     Indication: EYE DISORDER
     Dosage: 5 MG;TAB;PO;QD
     Route: 048
     Dates: start: 20090408, end: 20090417
  2. INSULIN (INSULIN) [Concomitant]
  3. LISINOPRIL [Concomitant]

REACTIONS (6)
  - DYSPHAGIA [None]
  - EATING DISORDER [None]
  - HYPERSENSITIVITY [None]
  - SPEECH DISORDER [None]
  - SWELLING FACE [None]
  - SWOLLEN TONGUE [None]
